FAERS Safety Report 9132014 (Version 4)
Quarter: 2013Q2

REPORT INFORMATION
  Report Type: Report from Study
  Country: TR (occurrence: TR)
  Receive Date: 20130301
  Receipt Date: 20130612
  Transmission Date: 20140414
  Serious: Yes (Other)
  Sender: FDA-Public Use
  Company Number: TR-JNJFOC-20121111045

PATIENT
  Age: 52 Year
  Sex: Female

DRUGS (4)
  1. REMICADE [Suspect]
     Indication: RHEUMATOID ARTHRITIS
     Route: 042
     Dates: start: 20130102
  2. REMICADE [Suspect]
     Indication: RHEUMATOID ARTHRITIS
     Dosage: FIRST INFUSION.
     Route: 042
     Dates: start: 20121101
  3. REMICADE [Suspect]
     Indication: RHEUMATOID ARTHRITIS
     Dosage: FIRST INFUSION.
     Route: 042
     Dates: start: 20121205
  4. REMICADE [Suspect]
     Indication: RHEUMATOID ARTHRITIS
     Route: 042
     Dates: start: 20130220, end: 201304

REACTIONS (12)
  - Joint swelling [Not Recovered/Not Resolved]
  - Tremor [Recovered/Resolved]
  - Pyrexia [Recovered/Resolved]
  - Headache [Recovered/Resolved]
  - Influenza [Recovered/Resolved]
  - Hepatic enzyme increased [Not Recovered/Not Resolved]
  - Sinusitis [Recovered/Resolved]
  - C-reactive protein increased [Recovered/Resolved]
  - Weight increased [Not Recovered/Not Resolved]
  - Fatigue [Recovered/Resolved]
  - Decreased appetite [Recovered/Resolved]
  - Infection [Recovered/Resolved]
